FAERS Safety Report 16961843 (Version 1)
Quarter: 2019Q4

REPORT INFORMATION
  Report Type: Spontaneous
  Country: US (occurrence: US)
  Receive Date: 20191025
  Receipt Date: 20191025
  Transmission Date: 20200122
  Serious: Yes (Hospitalization, Other)
  Sender: FDA-Public Use
  Company Number: US-GALDERMA-US19062243

PATIENT
  Sex: Male

DRUGS (1)
  1. DOXYCYCLINE. [Suspect]
     Active Substance: DOXYCYCLINE
     Indication: OSTEOMYELITIS CHRONIC
     Route: 065

REACTIONS (4)
  - Pancreatitis [Recovering/Resolving]
  - Drug-induced liver injury [Recovered/Resolved]
  - Product use in unapproved indication [Recovered/Resolved]
  - Hypertransaminasaemia [Recovering/Resolving]
